FAERS Safety Report 9741779 (Version 1)
Quarter: 2013Q4

REPORT INFORMATION
  Report Type: Spontaneous
  Country: GB (occurrence: GB)
  Receive Date: 20131210
  Receipt Date: 20131210
  Transmission Date: 20140711
  Serious: Yes (Life-Threatening)
  Sender: FDA-Public Use
  Company Number: GB-RANBAXY-2013R1-75754

PATIENT
  Age: 78 Year
  Sex: Female

DRUGS (6)
  1. CODEINE [Suspect]
     Indication: PAIN
     Dosage: ONE TO TWO FOUR TIMES A DAY
     Route: 048
     Dates: start: 20131014, end: 20131018
  2. IBUPROFEN [Suspect]
     Indication: PAIN
     Dosage: ONE TO TWO THREE TIMES A DAY
     Route: 048
     Dates: start: 20131016, end: 20131020
  3. LANSOPRAZOLE [Suspect]
     Indication: PAIN
     Dosage: 15 MG, QD
     Route: 048
     Dates: start: 20131016, end: 20131020
  4. SINEMET [Concomitant]
     Indication: PARKINSON^S DISEASE
     Dosage: 1 DF, TID
     Route: 048
  5. FUROSEMIDE [Concomitant]
     Indication: LOCAL SWELLING
     Dosage: 40 MG, QD
     Route: 048
     Dates: start: 20131008, end: 20131021
  6. PARACETAMOL [Concomitant]
     Indication: PAIN
     Dosage: 1 G, PRN
     Route: 048
     Dates: start: 20131015

REACTIONS (1)
  - Dermatitis exfoliative [Recovering/Resolving]
